FAERS Safety Report 10253629 (Version 2)
Quarter: 2014Q2

REPORT INFORMATION
  Report Type: Report from Study
  Country: NZ (occurrence: NZ)
  Receive Date: 20140623
  Receipt Date: 20140623
  Transmission Date: 20141212
  Serious: Yes (Death, Other)
  Sender: FDA-Public Use
  Company Number: PHHY2014NZ073955

PATIENT
  Sex: Female

DRUGS (1)
  1. CLOZARIL [Suspect]
     Indication: SCHIZOPHRENIA
     Dosage: 300 MG, QD (AT NIGHT)
     Route: 048
     Dates: start: 2005

REACTIONS (5)
  - Breast cancer [Fatal]
  - Breast mass [Fatal]
  - Metastases to bone [Unknown]
  - Metastases to liver [Unknown]
  - Metastases to lung [Unknown]
